FAERS Safety Report 12755658 (Version 1)
Quarter: 2016Q3

REPORT INFORMATION
  Report Type: Spontaneous
  Country: AU (occurrence: AU)
  Receive Date: 20160916
  Receipt Date: 20160916
  Transmission Date: 20161109
  Serious: Yes (Other)
  Sender: FDA-Public Use
  Company Number: AU-009507513-1008USA01391

PATIENT
  Age: 6 Year
  Sex: Female

DRUGS (1)
  1. SINGULAIR [Suspect]
     Active Substance: MONTELUKAST SODIUM
     Indication: ASTHMA
     Dosage: 5 MG, QD
     Route: 048
     Dates: start: 20100401, end: 20100503

REACTIONS (4)
  - Mood swings [Recovered/Resolved]
  - Listless [Recovered/Resolved]
  - Unresponsive to stimuli [Recovered/Resolved]
  - Depression [Recovered/Resolved]

NARRATIVE: CASE EVENT DATE: 20100419
